FAERS Safety Report 8433817-7 (Version None)
Quarter: 2012Q2

REPORT INFORMATION
  Report Type: 
  Country: None (occurrence: None)
  Receive Date: 20120613
  Receipt Date: 20120607
  Transmission Date: 20120825
  Serious: Yes (Disabling)
  Sender: FDA-Public Use
  Company Number: GB-PFIZER INC-2012094590

PATIENT
  Age: 58 Year
  Sex: Male
  Weight: 78 kg

DRUGS (1)
  1. VFEND [Suspect]
     Indication: ASPERGILLOSIS
     Dosage: 200 MG, 2X/DAY
     Route: 048
     Dates: start: 20120201

REACTIONS (1)
  - CATARACT [None]
